FAERS Safety Report 17595251 (Version 1)
Quarter: 2020Q1

REPORT INFORMATION
  Report Type: Spontaneous
  Country: DE (occurrence: DE)
  Receive Date: 20200328
  Receipt Date: 20200328
  Transmission Date: 20200409
  Serious: Yes (Other)
  Sender: FDA-Public Use
  Company Number: NVSC2020DE085167

PATIENT
  Age: 9 Year
  Sex: Male

DRUGS (4)
  1. TACROLIMUS. [Suspect]
     Active Substance: TACROLIMUS
     Indication: HEART TRANSPLANT
     Dosage: UNK
     Route: 065
  2. MYCOPHENOLATE MOFETIL. [Suspect]
     Active Substance: MYCOPHENOLATE MOFETIL
     Indication: IMMUNOSUPPRESSANT DRUG THERAPY
  3. MYCOPHENOLATE MOFETIL. [Suspect]
     Active Substance: MYCOPHENOLATE MOFETIL
     Indication: HEART TRANSPLANT
     Dosage: UNK
     Route: 065
  4. TACROLIMUS. [Suspect]
     Active Substance: TACROLIMUS
     Indication: IMMUNOSUPPRESSANT DRUG THERAPY

REACTIONS (9)
  - Respiratory distress [Recovered/Resolved]
  - Cyanosis [Recovered/Resolved]
  - Sarcoidosis [Recovered/Resolved]
  - Malaise [Recovered/Resolved]
  - Hepatosplenomegaly [Unknown]
  - Dyspnoea [Recovered/Resolved]
  - Disease progression [Unknown]
  - Lymphadenitis [Recovered/Resolved]
  - Lymphadenopathy [Unknown]
